FAERS Safety Report 5727390-1 (Version None)
Quarter: 2008Q2

REPORT INFORMATION
  Report Type: 
  Country: None (occurrence: None)
  Receive Date: 20080505
  Receipt Date: 20080424
  Transmission Date: 20081010
  Serious: Yes (Hospitalization)
  Sender: FDA-Public Use
  Company Number: GB-AMGEN-US276466

PATIENT
  Age: 62 Year
  Sex: Female

DRUGS (8)
  1. ENBREL [Suspect]
     Indication: RHEUMATOID ARTHRITIS
     Route: 058
     Dates: start: 20070401
  2. CANDESARTAN CILEXETIL [Concomitant]
     Route: 048
  3. SERETIDE [Concomitant]
     Route: 055
  4. LEFLUNOMIDE [Concomitant]
     Route: 048
  5. MELOXICAM [Concomitant]
  6. NIFEDIPINE [Concomitant]
     Dosage: 30MG, FREQUENCY UNKNOWN
     Route: 048
  7. AMITRIPTLINE HCL [Concomitant]
     Route: 048
  8. DOXAZOSIN MESYLATE [Concomitant]

REACTIONS (1)
  - FEMORAL NECK FRACTURE [None]
